FAERS Safety Report 11649052 (Version 2)
Quarter: 2015Q4

REPORT INFORMATION
  Report Type: Spontaneous
  Country: US (occurrence: US)
  Receive Date: 20151021
  Receipt Date: 20151204
  Transmission Date: 20160304
  Serious: No
  Sender: FDA-Public Use
  Company Number: US-APOTEX-2015AP007648

PATIENT
  Sex: Male

DRUGS (1)
  1. FENTANYL TRANSDERMAL SYSTEM [Suspect]
     Active Substance: FENTANYL
     Indication: PAIN
     Dosage: 1 DF, QD (1 DF EVERY 24 HR)
     Route: 062

REACTIONS (4)
  - Chills [Recovered/Resolved]
  - Product substitution [None]
  - Product adhesion issue [Recovered/Resolved]
  - Drug ineffective [Recovered/Resolved]
